FAERS Safety Report 20181615 (Version 1)
Quarter: 2021Q4

REPORT INFORMATION
  Report Type: Report from Study
  Country: NZ (occurrence: None)
  Receive Date: 20211214
  Receipt Date: 20211214
  Transmission Date: 20220303
  Serious: Yes (Hospitalization)
  Sender: FDA-Public Use
  Company Number: NZ-Eisai Medical Research-EC-2021-104726

PATIENT
  Age: 56 Year
  Sex: Female

DRUGS (1)
  1. LENVIMA [Suspect]
     Active Substance: LENVATINIB
     Indication: Thyroid cancer
     Dosage: UNKNOWN FREQUENCY
     Route: 048
     Dates: end: 2021

REACTIONS (1)
  - Radiation oesophagitis [Recovering/Resolving]

NARRATIVE: CASE EVENT DATE: 20211117
